FAERS Safety Report 15452917 (Version 1)
Quarter: 2018Q4

REPORT INFORMATION
  Report Type: Spontaneous
  Country: US (occurrence: US)
  Receive Date: 20181001
  Receipt Date: 20181001
  Transmission Date: 20190204
  Serious: No
  Sender: FDA-Public Use
  Company Number: US-PFIZER INC-2018393777

PATIENT
  Age: 49 Year
  Sex: Female
  Weight: 64.4 kg

DRUGS (1)
  1. GABAPENTIN. [Suspect]
     Active Substance: GABAPENTIN
     Indication: PAIN
     Dosage: 300 MG, UNK

REACTIONS (3)
  - Gait disturbance [Unknown]
  - Dysarthria [Unknown]
  - Feeling drunk [Unknown]
